FAERS Safety Report 15311299 (Version 1)
Quarter: 2018Q3

REPORT INFORMATION
  Report Type: Spontaneous
  Country: HR (occurrence: HR)
  Receive Date: 20180823
  Receipt Date: 20180823
  Transmission Date: 20181010
  Serious: Yes (Other)
  Sender: FDA-Public Use
  Company Number: HR-PFIZER INC-2018339229

PATIENT
  Age: 16 Year
  Sex: Female

DRUGS (1)
  1. CLINDAMYCIN HCL [Suspect]
     Active Substance: CLINDAMYCIN HYDROCHLORIDE
     Dosage: 7 DF, 1X/DAY
     Route: 048
     Dates: start: 20180606, end: 20180606

REACTIONS (3)
  - Intentional overdose [Unknown]
  - Abdominal pain [Unknown]
  - Suicide attempt [Unknown]

NARRATIVE: CASE EVENT DATE: 20180606
